FAERS Safety Report 14651754 (Version 1)
Quarter: 2018Q1

REPORT INFORMATION
  Report Type: Spontaneous
  Country: FR (occurrence: FR)
  Receive Date: 20180317
  Receipt Date: 20180317
  Transmission Date: 20180509
  Serious: Yes (Other)
  Sender: FDA-Public Use
  Company Number: FR-AUROBINDO-AUR-APL-2018-014300

PATIENT
  Age: 71 Year
  Sex: Male
  Weight: 80 kg

DRUGS (6)
  1. SOTALEX [Suspect]
     Active Substance: SOTALOL
     Indication: PRODUCT USED FOR UNKNOWN INDICATION
     Dosage: 1 DF, QD, STRENGHT: 80 (UNITS NOT PROVIDED)
  2. OMEPRAZOLE. [Suspect]
     Active Substance: OMEPRAZOLE
     Indication: OESOPHAGITIS
     Dosage: 1 DF, QD, STRENGTH: 40 (UNITS NOT REPORTED)
     Route: 065
  3. INEGY [Suspect]
     Active Substance: EZETIMIBE\SIMVASTATIN
     Indication: PRODUCT USED FOR UNKNOWN INDICATION
     Dosage: 1 DF, QD
     Route: 048
     Dates: start: 2015
  4. PANTOPRAZOLE [Concomitant]
     Active Substance: PANTOPRAZOLE
     Indication: PRODUCT USED FOR UNKNOWN INDICATION
     Dosage: 1 DF, QD, STRENGHT: 40 (UNITS NOT PROVIDED)
  5. DOMPERIDONE [Concomitant]
     Active Substance: DOMPERIDONE
     Indication: OESOPHAGITIS
     Dosage: 1 DF, QD, STRENGTH: 10 (UNITS NOT PROVIDED)
  6. NOOTROPYL [Concomitant]
     Active Substance: PIRACETAM
     Indication: MEMORY IMPAIRMENT
     Dosage: 3 DF, QD, STRENGTH: 800 (UNITS NOT PROVIDED)

REACTIONS (6)
  - Calculus urinary [Unknown]
  - Drug ineffective [Unknown]
  - Low density lipoprotein increased [Unknown]
  - Blood creatine phosphokinase decreased [Recovered/Resolved]
  - Pancreatitis [Unknown]
  - Tachycardia [Unknown]

NARRATIVE: CASE EVENT DATE: 2017
